FAERS Safety Report 6791254-5 (Version None)
Quarter: 2010Q2

REPORT INFORMATION
  Report Type: 
  Country: None (occurrence: None)
  Receive Date: 20100624
  Receipt Date: 20100622
  Transmission Date: 20101027
  Serious: Yes (Other)
  Sender: FDA-Public Use
  Company Number: US-WATSON-2010-08393

PATIENT
  Sex: Male

DRUGS (1)
  1. ALPRAZOLAM [Suspect]
     Indication: ANXIETY
     Dosage: 12 MG, UNK

REACTIONS (2)
  - ATRIOVENTRICULAR BLOCK FIRST DEGREE [None]
  - OVERDOSE [None]
